FAERS Safety Report 6803499-6 (Version None)
Quarter: 2010Q2

REPORT INFORMATION
  Report Type: 
  Country: None (occurrence: None)
  Receive Date: 20100628
  Receipt Date: 20100614
  Transmission Date: 20101027
  Serious: Yes (Hospitalization)
  Sender: FDA-Public Use
  Company Number: NL-MEDIMMUNE-MEDI-0010145

PATIENT
  Sex: Male

DRUGS (3)
  1. SYNAGIS [Suspect]
     Route: 030
     Dates: start: 20091207, end: 20091207
  2. SYNAGIS [Suspect]
     Route: 030
     Dates: start: 20100106
  3. NENATAL [Concomitant]

REACTIONS (1)
  - CONSTIPATION [None]
